FAERS Safety Report 4352318-9 (Version None)
Quarter: 2004Q2

REPORT INFORMATION
  Report Type: 
  Country: None (occurrence: None)
  Receive Date: 20040430
  Receipt Date: 20031202
  Transmission Date: 20050107
  Serious: Yes (Other)
  Sender: FDA-Public Use
  Company Number: 22566 (1)

PATIENT
  Age: 50 Year
  Sex: Male

DRUGS (4)
  1. ALDARA [Suspect]
     Indication: LYMPHOPROLIFERATIVE DISORDER
     Dosage: (0.1 SACHET, 3 IN 1WEEK(S)), TOPICAL
     Route: 061
  2. PROTONIX [Suspect]
  3. MESOCOLOR [Suspect]
  4. ALLEGRA [Suspect]

REACTIONS (3)
  - PETECHIAE [None]
  - PLATELET COUNT DECREASED [None]
  - THROMBOCYTOPENIA [None]
